FAERS Safety Report 6884330-X (Version None)
Quarter: 2010Q3

REPORT INFORMATION
  Report Type: 
  Country: None (occurrence: None)
  Receive Date: 20100729
  Receipt Date: 20070708
  Transmission Date: 20110219
  Serious: No
  Sender: FDA-Public Use
  Company Number: US-PFIZER INC-2007056039

PATIENT
  Sex: Female
  Weight: 61.363 kg

DRUGS (3)
  1. CELEBREX [Suspect]
     Indication: EPICONDYLITIS
     Dates: start: 20070619, end: 20070705
  2. ADIPEX [Concomitant]
  3. ACETAMINOPHEN [Concomitant]

REACTIONS (2)
  - BLISTER [None]
  - BLOOD BLISTER [None]
